FAERS Safety Report 10956457 (Version 1)
Quarter: 2015Q1

REPORT INFORMATION
  Report Type: Spontaneous
  Country: JP (occurrence: JP)
  Receive Date: 20150326
  Receipt Date: 20150326
  Transmission Date: 20150721
  Serious: Yes (Death)
  Sender: FDA-Public Use
  Company Number: JP-TEVA-549027ISR

PATIENT

DRUGS (2)
  1. GIMERACIL, OTERACIL, TEGAFUR [Suspect]
     Active Substance: GIMERACIL\OTERACIL\TEGAFUR
     Indication: PANCREATIC CARCINOMA
     Dosage: 60 MG/M2 DAILY; ON DAY 1 - 14 AND DAY 22 - 35
     Route: 048
  2. GEMCITABINE [Suspect]
     Active Substance: GEMCITABINE\GEMCITABINE HYDROCHLORIDE
     Indication: PANCREATIC CARCINOMA
     Dosage: BY DRIP INFUSION ON DAY 1,2,22 AND 29

REACTIONS (1)
  - Death [Fatal]
